FAERS Safety Report 6199146-X (Version None)
Quarter: 2009Q2

REPORT INFORMATION
  Report Type: 
  Country: None (occurrence: None)
  Receive Date: 20090522
  Receipt Date: 20090403
  Transmission Date: 20091009
  Serious: No
  Sender: FDA-Public Use
  Company Number: A0758717A

PATIENT
  Age: 70 Year
  Sex: Male

DRUGS (6)
  1. VERAMYST [Suspect]
     Dosage: 2PUFF PER DAY
     Route: 045
     Dates: start: 20080601, end: 20081127
  2. ZYRTEC [Concomitant]
  3. RANITIDINE [Concomitant]
  4. TRAZODONE HCL [Concomitant]
  5. NASONEX [Concomitant]
  6. VENTOLIN HFA [Concomitant]

REACTIONS (7)
  - DACRYOCANALICULITIS [None]
  - DACRYOSTENOSIS ACQUIRED [None]
  - LACRIMATION INCREASED [None]
  - PAIN [None]
  - POSTNASAL DRIP [None]
  - RHINITIS [None]
  - SNEEZING [None]
